FAERS Safety Report 8607037-7 (Version None)
Quarter: 2012Q3

REPORT INFORMATION
  Report Type: 
  Country: None (occurrence: None)
  Receive Date: 20120821
  Receipt Date: 20120808
  Transmission Date: 20120928
  Serious: Yes (Other)
  Sender: FDA-Public Use
  Company Number: CO-BRISTOL-MYERS SQUIBB COMPANY-16850091

PATIENT
  Age: 67 Year
  Sex: Female

DRUGS (1)
  1. TAXOL [Suspect]
     Indication: BREAST CANCER
     Dosage: 300MG IN 3 HOURS INFUSION. INTER ON 8AUG12
     Dates: start: 20120707

REACTIONS (4)
  - MUSCULAR WEAKNESS [None]
  - CHEST DISCOMFORT [None]
  - BONE PAIN [None]
  - FLUSHING [None]
